FAERS Safety Report 13163772 (Version 2)
Quarter: 2017Q2

REPORT INFORMATION
  Report Type: Report from Study
  Country: IE (occurrence: IE)
  Receive Date: 20170130
  Receipt Date: 20170403
  Transmission Date: 20170830
  Serious: Yes (Hospitalization)
  Sender: FDA-Public Use
  Company Number: IE-ASTELLAS-2016US012698

PATIENT
  Age: 77 Year
  Sex: Male

DRUGS (2)
  1. ENZALUTAMIDE [Suspect]
     Active Substance: ENZALUTAMIDE
     Indication: HORMONE-REFRACTORY PROSTATE CANCER
     Route: 048
     Dates: start: 20151123, end: 20160331
  2. RADIUM RA 223 DICHLORIDE [Suspect]
     Active Substance: RADIUM RA-223 DICHLORIDE
     Indication: HORMONE-REFRACTORY PROSTATE CANCER
     Dosage: 4.41, UNKNOWN FREQ.
     Route: 042
     Dates: start: 20151123, end: 20160214

REACTIONS (3)
  - Pneumonia viral [Recovered/Resolved]
  - Lower respiratory tract infection [Recovered/Resolved]
  - Dyspnoea [Recovered/Resolved]

NARRATIVE: CASE EVENT DATE: 20160331
